FAERS Safety Report 4715939-7 (Version None)
Quarter: 2005Q3

REPORT INFORMATION
  Report Type: 
  Country: None (occurrence: None)
  Receive Date: 20050718
  Receipt Date: 20050302
  Transmission Date: 20060218
  Serious: Yes (Hospitalization)
  Sender: FDA-Public Use
  Company Number: US-MERCK-0503USA00562

PATIENT
  Age: 77 Year
  Sex: Female
  Weight: 64 kg

DRUGS (4)
  1. VIOXX [Suspect]
     Indication: OSTEOARTHRITIS
     Route: 048
     Dates: start: 20010920, end: 20030528
  2. HYTRIN [Concomitant]
     Indication: HYPERTENSION
     Route: 048
     Dates: start: 20010101
  3. TYLENOL [Concomitant]
     Indication: ANALGESIC EFFECT
     Route: 048
  4. PREMARIN [Concomitant]
     Indication: HORMONE REPLACEMENT THERAPY
     Route: 048

REACTIONS (4)
  - KNEE ARTHROPLASTY [None]
  - RENAL DISORDER [None]
  - RENAL FAILURE [None]
  - SYNCOPE [None]
